FAERS Safety Report 14784235 (Version 3)
Quarter: 2018Q4

REPORT INFORMATION
  Report Type: Report from Study
  Country: BE (occurrence: BE)
  Receive Date: 20180420
  Receipt Date: 20181211
  Transmission Date: 20190204
  Serious: Yes (Death, Life-Threatening, Hospitalization, Other)
  Sender: FDA-Public Use
  Company Number: BE-PFIZER INC-2018159435

PATIENT
  Age: 68 Year
  Sex: Male
  Weight: 75 kg

DRUGS (6)
  1. INCB039110 [Suspect]
     Active Substance: ITACITINIB
     Dosage: 100 MG, DAILY
     Route: 048
     Dates: start: 20180309, end: 20180319
  2. MEDROL [Suspect]
     Active Substance: METHYLPREDNISOLONE
     Dosage: 64 MG, QD
     Route: 048
     Dates: start: 20180305, end: 20180307
  3. INCB039110 [Suspect]
     Active Substance: ITACITINIB
     Indication: GRAFT VERSUS HOST DISEASE
     Dosage: 200 MG, DAILY
     Route: 048
     Dates: start: 20180214, end: 20180308
  4. MEDROL [Suspect]
     Active Substance: METHYLPREDNISOLONE
     Indication: GRAFT VERSUS HOST DISEASE
     Dosage: 64 MG, BID
     Route: 048
     Dates: start: 20180213, end: 20180304
  5. MEDROL [Suspect]
     Active Substance: METHYLPREDNISOLONE
     Dosage: 64 MG, QD
     Route: 048
     Dates: start: 20180308
  6. INCB039110 [Suspect]
     Active Substance: ITACITINIB
     Dosage: 200 MG, DAILY
     Route: 048
     Dates: start: 20180320, end: 20180329

REACTIONS (4)
  - Febrile neutropenia [Recovered/Resolved]
  - Aspergillus infection [Not Recovered/Not Resolved]
  - Diabetes mellitus [Not Recovered/Not Resolved]
  - Fungal infection [Fatal]

NARRATIVE: CASE EVENT DATE: 20180308
